FAERS Safety Report 7774958-7 (Version None)
Quarter: 2011Q3

REPORT INFORMATION
  Report Type: 
  Country: None (occurrence: None)
  Receive Date: 20110923
  Receipt Date: 20110916
  Transmission Date: 20111222
  Serious: Yes (Hospitalization, Other)
  Sender: FDA-Public Use
  Company Number: PHHY2011JP67166

PATIENT

DRUGS (3)
  1. ETHAMBUTOL HYDROCHLORIDE [Suspect]
     Route: 064
  2. ISONIAZID [Suspect]
     Dosage: UNK
     Route: 064
  3. RIFAMPICIN [Suspect]
     Route: 064

REACTIONS (4)
  - NEONATAL RESPIRATORY DISTRESS SYNDROME [None]
  - PREMATURE BABY [None]
  - CONGENITAL TUBERCULOSIS [None]
  - MATERNAL EXPOSURE DURING PREGNANCY [None]
